FAERS Safety Report 10565996 (Version 2)
Quarter: 2014Q4

REPORT INFORMATION
  Report Type: Spontaneous
  Country: IT (occurrence: IT)
  Receive Date: 20141105
  Receipt Date: 20141207
  Transmission Date: 20150529
  Serious: Yes (Hospitalization)
  Sender: FDA-Public Use
  Company Number: IT-TEVA-519041ISR

PATIENT
  Age: 35 Year
  Sex: Female

DRUGS (3)
  1. RIVOTRIL [Concomitant]
     Active Substance: CLONAZEPAM
     Dosage: 10 MILLIGRAM DAILY;
     Route: 048
  2. CITALOPRAM ABC 20 MG [Concomitant]
     Dosage: 20 MILLIGRAM DAILY;
     Route: 048
  3. CARBOLITHIUM 300 MG [Suspect]
     Active Substance: LITHIUM CARBONATE
     Dosage: 300 MILLIGRAM DAILY;
     Route: 048
     Dates: start: 20131119, end: 20131126

REACTIONS (2)
  - Hypokalaemia [Recovered/Resolved]
  - Toxicity to various agents [Recovered/Resolved]

NARRATIVE: CASE EVENT DATE: 20131126
